FAERS Safety Report 24824565 (Version 1)
Quarter: 2025Q1

REPORT INFORMATION
  Report Type: Spontaneous
  Country: US (occurrence: US)
  Receive Date: 20250109
  Receipt Date: 20250109
  Transmission Date: 20250409
  Serious: No
  Sender: AMARIN
  Company Number: US-Amarin Pharma  Inc-2024AMR000622

PATIENT
  Age: 57 Year
  Sex: Female

DRUGS (5)
  1. VASCEPA [Suspect]
     Active Substance: ICOSAPENT ETHYL
     Indication: Blood cholesterol
     Dates: end: 202412
  2. VASCEPA [Suspect]
     Active Substance: ICOSAPENT ETHYL
     Indication: Blood triglycerides
  3. ZETIA [Concomitant]
     Active Substance: EZETIMIBE
     Indication: Product used for unknown indication
  4. MAGNESIUM GLYCINATE [Concomitant]
     Active Substance: MAGNESIUM GLYCINATE
     Indication: Product used for unknown indication
  5. VITAMIN K [Concomitant]
     Active Substance: PHYTONADIONE

REACTIONS (7)
  - Vision blurred [Unknown]
  - Hepatic enzyme increased [Not Recovered/Not Resolved]
  - Migraine [Unknown]
  - Peripheral swelling [Recovered/Resolved]
  - Blood triglycerides increased [Not Recovered/Not Resolved]
  - Therapeutic response unexpected [Unknown]
  - Therapy interrupted [Unknown]

NARRATIVE: CASE EVENT DATE: 20241201
